FAERS Safety Report 20921176 (Version 2)
Quarter: 2022Q2

REPORT INFORMATION
  Report Type: Spontaneous
  Country: GB (occurrence: GB)
  Receive Date: 20220606
  Receipt Date: 20220617
  Transmission Date: 20220720
  Serious: Yes (Hospitalization, Other)
  Sender: FDA-Public Use
  Company Number: GB-JNJFOC-20180234113

PATIENT
  Age: 86 Year
  Sex: Female

DRUGS (40)
  1. SIMVASTATIN [Suspect]
     Active Substance: SIMVASTATIN
     Indication: Product used for unknown indication
     Dosage: 40 MG, ONCE DAILY (QD)(NIGHT)ADDITIONAL INFO: MISUSE,OFF LABEL USE,MISUSE,OFF LABEL USE,OFF LABEL U
     Route: 048
  2. SIMVASTATIN [Suspect]
     Active Substance: SIMVASTATIN
     Dosage: 40 MG, ONCE DAILY (QD)ADDITIONAL INFO: MISUSE, OFF LABEL USESIMVASTATIN
     Route: 065
  3. SIMVASTATIN [Suspect]
     Active Substance: SIMVASTATIN
     Dosage: 40 MG, QD (NIGHT)ADDITIONAL INFO: MISUSE,OFF LABEL USE,MISUSE,OFF LABEL USE,OFF LABEL USE,MISUSE
     Route: 065
  4. SIMVASTATIN [Suspect]
     Active Substance: SIMVASTATIN
     Indication: Product used for unknown indication
     Dosage: 40 MG, HSADDITIONAL INFO: MISUSE,OFF LABEL USE,MISUSE,OFF LABEL USE,OFF LABEL USE, MISUSE: (FORMULAT
     Route: 065
  5. SIMVASTATIN [Suspect]
     Active Substance: SIMVASTATIN
     Dosage: 40 MILLIGRAM, HSADDITIONAL INFO: MISUSE,OFF LABEL
     Route: 065
  6. APIXABAN [Suspect]
     Active Substance: APIXABAN
     Indication: Atrial fibrillation
     Dosage: 5 MG, (QD)ADDITIONAL INFO: OLU: OFF LABEL DOSING FREQUENCY
     Route: 065
     Dates: start: 20180207, end: 20180207
  7. APIXABAN [Suspect]
     Active Substance: APIXABAN
     Indication: Cerebrovascular accident prophylaxis
     Dosage: 10 MG, QD (DOSAGE FORM: UNSPECIFIED, OFF LABEL DOSING FREQUENCY)ADDITIONAL INFO: OLU: OFF LABEL DOS
     Route: 042
     Dates: start: 20180207, end: 20180207
  8. APIXABAN [Suspect]
     Active Substance: APIXABAN
     Indication: Product used for unknown indication
     Dosage: UNK
  9. BISOPROLOL FUMARATE [Suspect]
     Active Substance: BISOPROLOL FUMARATE
     Indication: Product used for unknown indication
     Dosage: 10 MG, ONE DAY
     Route: 048
  10. BISOPROLOL FUMARATE [Suspect]
     Active Substance: BISOPROLOL FUMARATE
     Indication: Cerebrovascular accident prophylaxis
     Dosage: 5 MG DAILY
     Route: 048
     Dates: start: 20180207, end: 20180207
  11. CANDESARTAN CILEXETIL [Suspect]
     Active Substance: CANDESARTAN CILEXETIL
     Indication: Cerebrovascular accident prophylaxis
     Dosage: 2 MG, ONCE DAILY (QD) MORNINGADDITIONAL INFO: OFF LABEL DOSING FREQUENCY
     Route: 048
  12. CANDESARTAN CILEXETIL [Suspect]
     Active Substance: CANDESARTAN CILEXETIL
     Indication: Product used for unknown indication
     Dosage: UNK
     Route: 065
  13. HYDROCHLOROTHIAZIDE [Suspect]
     Active Substance: HYDROCHLOROTHIAZIDE
     Indication: Product used for unknown indication
     Dosage: 2 MG, QD MORNING
     Route: 048
  14. HYDROCHLOROTHIAZIDE [Suspect]
     Active Substance: HYDROCHLOROTHIAZIDE
     Indication: Cerebrovascular accident prophylaxis
     Dosage: UNK
  15. HYDROCHLOROTHIAZIDE [Suspect]
     Active Substance: HYDROCHLOROTHIAZIDE
     Indication: Product used for unknown indication
     Dosage: 1 DOSAGE FORM, QD (MORNING)
     Route: 065
  16. HYDROCHLOROTHIAZIDE [Suspect]
     Active Substance: HYDROCHLOROTHIAZIDE
     Dosage: 2 MG, QD(MORNING)ADDITIONAL INFO: OFF LABEL USE
     Route: 048
  17. CETIRIZINE HYDROCHLORIDE [Suspect]
     Active Substance: CETIRIZINE HYDROCHLORIDE
     Indication: Product used for unknown indication
     Dosage: 10 MG, ONCE DAILY (QD) (MORNING)ADDITIONAL INFO: MISUSE, OFF LABEL USE
     Route: 065
  18. DIGOXIN [Suspect]
     Active Substance: DIGOXIN
     Indication: Cerebrovascular accident prophylaxis
     Dosage: 62.5 GRAMS
     Route: 065
  19. DIGOXIN [Suspect]
     Active Substance: DIGOXIN
     Indication: Product used for unknown indication
     Dosage: 62.5 MICROGRAM, ONCE DAILY (QD) (MORNING)
     Route: 065
  20. ISOSORBIDE [Suspect]
     Active Substance: ISOSORBIDE
     Indication: Product used for unknown indication
     Dosage: 50 MG, ONCE DAILY (QD)  (MORNING)
     Route: 048
  21. ISOSORBIDE [Suspect]
     Active Substance: ISOSORBIDE
     Dosage: 50 MG, ONCE DAILY (QD)  (MORNING)
     Route: 048
  22. ISOSORBIDE [Suspect]
     Active Substance: ISOSORBIDE
     Dosage: UNK
     Route: 065
  23. ISOSORBIDE DINITRATE [Suspect]
     Active Substance: ISOSORBIDE DINITRATE
     Indication: Product used for unknown indication
     Dosage: 50 MILLIGRAM, MORNING ONCE A DAY
     Route: 048
  24. ISOSORBIDE DINITRATE [Suspect]
     Active Substance: ISOSORBIDE DINITRATE
     Indication: Product used for unknown indication
     Dosage: 50 MILLIGRAM, ONCE A DAY(MORNING)
     Route: 048
  25. ISOSORBIDE MONONITRATE [Suspect]
     Active Substance: ISOSORBIDE MONONITRATE
     Indication: Product used for unknown indication
     Dosage: 50 MILLIGRAM, ONCE A DAY(MORNING)
     Route: 048
  26. LANSOPRAZOLE [Suspect]
     Active Substance: LANSOPRAZOLE
     Indication: Product used for unknown indication
     Dosage: 10 MG (1 DAY) / 1 / 10 MILLIGRAM / 1 DAYS
     Route: 065
     Dates: start: 20180207, end: 20180207
  27. LANSOPRAZOLE [Suspect]
     Active Substance: LANSOPRAZOLE
     Indication: Atrial fibrillation
     Dosage: 10 MILLIGRAM, QD; 5MG, QD
     Route: 065
     Dates: start: 20180207, end: 20180207
  28. LANSOPRAZOLE [Suspect]
     Active Substance: LANSOPRAZOLE
     Dosage: 30 MG, ONCE DAILY (QD) (MORNING)
     Route: 065
  29. LANSOPRAZOLE [Suspect]
     Active Substance: LANSOPRAZOLE
     Dosage: 5 MILLIGRAM, QD
     Route: 065
     Dates: start: 20180218
  30. LEVOTHYROXINE SODIUM [Suspect]
     Active Substance: LEVOTHYROXINE SODIUM
     Indication: Product used for unknown indication
     Dosage: 50 MILLIGRAM, QD ADDITIONAL INFO: MISUSE, OFF LABEL USE
     Route: 065
  31. LEVOTHYROXINE SODIUM [Suspect]
     Active Substance: LEVOTHYROXINE SODIUM
     Indication: Product used for unknown indication
     Dosage: 1 DF - 50G, ONCE DAILY (QD)125 UG, QD (MORNING)ADDITIONAL INFO: MISUSE,OFF LABEL USE
     Route: 048
  32. LEVOTHYROXINE SODIUM [Suspect]
     Active Substance: LEVOTHYROXINE SODIUM
     Dosage: 1 DF - 50G, ONCE DAILY (QD); ADDITIONAL INFO: MISUSE, OFF LABEL USE
     Route: 065
  33. LEVOTHYROXINE SODIUM [Suspect]
     Active Substance: LEVOTHYROXINE SODIUM
     Dosage: 50 MCG, QD (50 MCG MORNING) ADDITIONAL INFO: MISUSE, OFF LABEL USE
     Route: 065
  34. LEVOTHYROXINE SODIUM [Suspect]
     Active Substance: LEVOTHYROXINE SODIUM
     Dosage: 12 MICROGRAM, QDADDITIONAL INFO: MISUSE,OFF LABELUSE
     Route: 065
  35. LEVOTHYROXINE SODIUM [Suspect]
     Active Substance: LEVOTHYROXINE SODIUM
     Dosage: 50 MILLIGRAM
  36. LEVOTHYROXINE SODIUM [Suspect]
     Active Substance: LEVOTHYROXINE SODIUM
     Dosage: 125 MICROGRAM, QD (MORNING)ADDITIONAL INFO:MISUSE,OFF LABEL USE
     Route: 065
  37. LEVOTHYROXINE SODIUM [Suspect]
     Active Substance: LEVOTHYROXINE SODIUM
     Dosage: 30 MG, ONCE DAILY MORNINGADDITIONAL INFO: MISUSE,  OFF LABEL USE
     Route: 065
  38. LEVOTHYROXINE SODIUM [Suspect]
     Active Substance: LEVOTHYROXINE SODIUM
     Dosage: 1 DOSAGE FORM, QD
     Route: 065
  39. LEVOTHYROXINE SODIUM [Suspect]
     Active Substance: LEVOTHYROXINE SODIUM
     Dosage: 10 MG, QD (10 MILLIGRAM, QD; 5MG, QD)ADDITIONAL INFO:MISUSE,OFF LABEL USE
     Route: 065
  40. LINAGLIPTIN [Suspect]
     Active Substance: LINAGLIPTIN
     Indication: Product used for unknown indication
     Dosage: 5 MG, ONCE DAILY (QD)  (MORNING)
     Route: 065

REACTIONS (3)
  - Subarachnoid haemorrhage [Recovered/Resolved with Sequelae]
  - Off label use [Recovered/Resolved with Sequelae]
  - Intentional product misuse [Unknown]
